FAERS Safety Report 22268229 (Version 4)
Quarter: 2024Q3

REPORT INFORMATION
  Report Type: Spontaneous
  Country: US (occurrence: US)
  Receive Date: 20230430
  Receipt Date: 20240723
  Transmission Date: 20241017
  Serious: No
  Sender: PFIZER
  Company Number: US-PFIZER INC-PV202300074808

PATIENT
  Age: 69 Year
  Sex: Female

DRUGS (2)
  1. IBRANCE [Suspect]
     Active Substance: PALBOCICLIB
     Indication: Breast cancer metastatic
     Dosage: 100 MG, CYCLIC (TAKE 1 TABLET DAILY ON DAYS 1-21 AND THEN TAKE 7 DAYS OFF. REPEAT EVERY 28 DAYS)
     Route: 048
  2. IBRANCE [Suspect]
     Active Substance: PALBOCICLIB
     Indication: Invasive lobular breast carcinoma

REACTIONS (2)
  - Pollakiuria [Unknown]
  - Constipation [Unknown]
